FAERS Safety Report 7354032-4 (Version None)
Quarter: 2011Q1

REPORT INFORMATION
  Report Type: 
  Country: None (occurrence: None)
  Receive Date: 20110315
  Receipt Date: 20110308
  Transmission Date: 20110831
  Serious: Yes (Hospitalization, Other)
  Sender: FDA-Public Use
  Company Number: US-US-EMD SERONO, INC.-7032456

PATIENT
  Sex: Male
  Weight: 73 kg

DRUGS (1)
  1. REBIF [Suspect]
     Indication: MULTIPLE SCLEROSIS
     Route: 058
     Dates: start: 20090225

REACTIONS (9)
  - URINARY TRACT INFECTION [None]
  - HEAD INJURY [None]
  - OEDEMA PERIPHERAL [None]
  - FALL [None]
  - INJECTION SITE ERYTHEMA [None]
  - STAPHYLOCOCCAL INFECTION [None]
  - CONTUSION [None]
  - NEUROGENIC BLADDER [None]
  - INJECTION SITE HAEMATOMA [None]
